FAERS Safety Report 24410895 (Version 1)
Quarter: 2024Q4

REPORT INFORMATION
  Report Type: Spontaneous
  Country: RO (occurrence: RO)
  Receive Date: 20241008
  Receipt Date: 20241008
  Transmission Date: 20250115
  Serious: Yes (Other)
  Sender: BAYER
  Company Number: RO-BAYER-2024A142281

PATIENT
  Sex: Female
  Weight: 2.84 kg

DRUGS (1)
  1. LORATADINE [Suspect]
     Active Substance: LORATADINE
     Dosage: 10 MG, QD

REACTIONS (3)
  - Autoimmune blistering disease [None]
  - Foetal exposure during pregnancy [None]
  - Premature baby [None]
